FAERS Safety Report 6050326-3 (Version None)
Quarter: 2009Q1

REPORT INFORMATION
  Report Type: 
  Country: None (occurrence: None)
  Receive Date: 20090126
  Receipt Date: 20090115
  Transmission Date: 20090719
  Serious: Yes (Death, Life-Threatening, Hospitalization)
  Sender: FDA-Public Use
  Company Number: CH-AMGEN-US329737

PATIENT
  Age: 20 Year
  Sex: Female

DRUGS (4)
  1. ENBREL [Suspect]
     Indication: STILL'S DISEASE ADULT ONSET
     Dosage: UNSPECIFIED
  2. METHYLPREDNISOLONE [Suspect]
     Dosage: UNSPECIFIED
  3. PHENYLBUTAZONE [Suspect]
     Dosage: UNSPECIFIED
  4. IBUPROFEN [Suspect]
     Indication: STILL'S DISEASE ADULT ONSET
     Dosage: UNSPECIFIED

REACTIONS (1)
  - HISTIOCYTOSIS HAEMATOPHAGIC [None]
